FAERS Safety Report 14020787 (Version 2)
Quarter: 2017Q4

REPORT INFORMATION
  Report Type: Spontaneous
  Country: DE (occurrence: DE)
  Receive Date: 20170928
  Receipt Date: 20171112
  Transmission Date: 20180321
  Serious: Yes (Death)
  Sender: FDA-Public Use
  Company Number: PHHY2017DE142399

PATIENT
  Sex: Male
  Weight: 82 kg

DRUGS (3)
  1. EPLERENONE. [Concomitant]
     Active Substance: EPLERENONE
     Indication: CARDIAC FAILURE
     Dosage: 1 DF, QD
     Route: 065
     Dates: start: 20170519
  2. BISOPROLOL [Concomitant]
     Active Substance: BISOPROLOL
     Indication: CARDIAC FAILURE
     Dosage: 2 DF, QD
     Route: 065
     Dates: start: 20170519
  3. ENTRESTO [Suspect]
     Active Substance: SACUBITRIL\VALSARTAN
     Indication: PRODUCT USED FOR UNKNOWN INDICATION
     Dosage: 0.5 DF, BID
     Route: 065
     Dates: start: 20170620

REACTIONS (2)
  - Wrong technique in product usage process [Unknown]
  - Death [Fatal]

NARRATIVE: CASE EVENT DATE: 20170620
